FAERS Safety Report 17077724 (Version 1)
Quarter: 2019Q4

REPORT INFORMATION
  Report Type: Spontaneous
  Country: US (occurrence: US)
  Receive Date: 20191126
  Receipt Date: 20191126
  Transmission Date: 20200122
  Serious: Yes (Death, Other)
  Sender: FDA-Public Use
  Company Number: US-AMGEN-USASP2019192874

PATIENT
  Age: 7 Year
  Sex: Male

DRUGS (11)
  1. VINCRISTINE [Concomitant]
     Active Substance: VINCRISTINE
  2. INOTUZUMAB OZOGAMICIN [Concomitant]
     Active Substance: INOTUZUMAB OZOGAMICIN
     Indication: LEUKAEMIA
  3. PREDNISONE. [Concomitant]
     Active Substance: PREDNISONE
  4. CLOFARABINE. [Concomitant]
     Active Substance: CLOFARABINE
  5. CYCLOPHOSPHAMIDE. [Concomitant]
     Active Substance: CYCLOPHOSPHAMIDE
  6. ETOPOSIDE. [Concomitant]
     Active Substance: ETOPOSIDE
  7. BLINATUMOMAB [Suspect]
     Active Substance: BLINATUMOMAB
     Indication: B PRECURSOR TYPE ACUTE LEUKAEMIA
     Dosage: UNK
     Route: 065
  8. 6-MERCAPTOPURINE [Concomitant]
     Active Substance: MERCAPTOPURINE
  9. ASPARAGINASE [Concomitant]
     Active Substance: ASPARAGINASE
  10. METHOTREXATE. [Concomitant]
     Active Substance: METHOTREXATE
     Dosage: HIGH DOSE
  11. CYTARABINE. [Concomitant]
     Active Substance: CYTARABINE
     Dosage: HIGH DOSE

REACTIONS (2)
  - Multiple organ dysfunction syndrome [Fatal]
  - Acute lymphocytic leukaemia [Fatal]
